FAERS Safety Report 7098814-5 (Version None)
Quarter: 2010Q4

REPORT INFORMATION
  Report Type: 
  Country: None (occurrence: None)
  Receive Date: 20101112
  Receipt Date: 20100407
  Transmission Date: 20110411
  Serious: Yes (Other)
  Sender: FDA-Public Use
  Company Number: TH-ROCHE-737934

PATIENT

DRUGS (1)
  1. HERCEPTIN [Suspect]
     Route: 065

REACTIONS (1)
  - METASTASES TO LIVER [None]
